FAERS Safety Report 4381321-8 (Version None)
Quarter: 2004Q2

REPORT INFORMATION
  Report Type: 
  Country: None (occurrence: None)
  Receive Date: 20040616
  Receipt Date: 20040607
  Transmission Date: 20050107
  Serious: Yes (Life-Threatening, Other)
  Sender: FDA-Public Use
  Company Number: US-JNJFOC-20040601630

PATIENT
  Age: 69 Year
  Sex: Male

DRUGS (2)
  1. LEVAQUIN [Suspect]
     Indication: URINARY TRACT INFECTION
     Dosage: 500 MG , 1 IN 1 DAY, ORAL
     Route: 048
  2. PHYTONADIONE [Concomitant]

REACTIONS (2)
  - OPERATIVE HAEMORRHAGE [None]
  - VON WILLEBRAND'S DISEASE [None]
